FAERS Safety Report 7961328-1 (Version None)
Quarter: 2011Q4

REPORT INFORMATION
  Report Type: 
  Country: None (occurrence: None)
  Receive Date: 20111207
  Receipt Date: 20111125
  Transmission Date: 20120403
  Serious: Yes (Other)
  Sender: FDA-Public Use
  Company Number: PHFR2011GB04706

PATIENT
  Sex: Female

DRUGS (7)
  1. CLOZARIL [Suspect]
     Dosage: 300 MG/DAY
     Dates: end: 20110809
  2. ACETYLSALICYLIC ACID SRT [Concomitant]
     Dosage: 75 MG/DAY (LONG STANDING USE)
     Route: 048
  3. AMLODIPINE [Concomitant]
     Indication: HYPERTENSION
     Dosage: 5 MG/DAY
     Route: 048
     Dates: start: 20110529, end: 20110809
  4. SIMVASTATIN [Concomitant]
     Indication: BLOOD CHOLESTEROL INCREASED
     Dosage: 40 MG/DAY (LONGSTANDING USE)
     Route: 048
  5. CLOZARIL [Suspect]
     Indication: SCHIZOPHRENIA
     Route: 048
     Dates: start: 20110719
  6. CLOZARIL [Suspect]
     Dosage: 87.5 MANE, 200 MG NOCTE
     Route: 048
  7. LANSOPRAZOLE [Concomitant]
     Indication: GASTROOESOPHAGEAL REFLUX PROPHYLAXIS
     Dosage: 1.5 MG/DAY (LONGSTANDING USE)
     Route: 048

REACTIONS (10)
  - ARTHRITIS [None]
  - MYOSITIS [None]
  - RALES [None]
  - SEDATION [None]
  - CARDIAC DISORDER [None]
  - CARDIAC FAILURE [None]
  - SINUS TACHYCARDIA [None]
  - OEDEMA PERIPHERAL [None]
  - SENSATION OF HEAVINESS [None]
  - CREPITATIONS [None]
